FAERS Safety Report 13710249 (Version 1)
Quarter: 2017Q2

REPORT INFORMATION
  Report Type: Spontaneous
  Country: US (occurrence: US)
  Receive Date: 20170630
  Receipt Date: 20170630
  Transmission Date: 20170830
  Serious: No
  Sender: FDA-Public Use
  Company Number: None

PATIENT
  Age: 60 Year
  Sex: Female

DRUGS (1)
  1. LYSODREN [Suspect]
     Active Substance: MITOTANE

REACTIONS (4)
  - Dizziness [None]
  - Therapy change [None]
  - Diarrhoea [None]
  - Vision blurred [None]

NARRATIVE: CASE EVENT DATE: 20170301
